FAERS Safety Report 4745099-8 (Version None)
Quarter: 2005Q3

REPORT INFORMATION
  Report Type: 
  Country: None (occurrence: None)
  Receive Date: 20050815
  Receipt Date: 20050721
  Transmission Date: 20060218
  Serious: Yes (Death, Life-Threatening)
  Sender: FDA-Public Use
  Company Number: JP-ROCHE-411490

PATIENT
  Age: 73 Year
  Sex: Male

DRUGS (6)
  1. PEGASYS [Suspect]
     Route: 058
     Dates: start: 20050113
  2. PEGASYS [Suspect]
     Route: 058
     Dates: start: 20050620, end: 20050701
  3. NORVASC [Concomitant]
     Route: 048
  4. BLOPRESS [Concomitant]
     Route: 048
  5. UNSPECIFIED DRUG [Concomitant]
     Indication: HEPATITIS C
     Dates: start: 20010615
  6. UNSPECIFIED DRUG [Concomitant]
     Dates: start: 20020615

REACTIONS (6)
  - ACUTE MYOCARDIAL INFARCTION [None]
  - BLOOD CREATININE INCREASED [None]
  - CARDIO-RESPIRATORY ARREST [None]
  - DIALYSIS [None]
  - DISSEMINATED INTRAVASCULAR COAGULATION [None]
  - HAEMOLYTIC URAEMIC SYNDROME [None]
